FAERS Safety Report 22033463 (Version 4)
Quarter: 2023Q2

REPORT INFORMATION
  Report Type: Report from Study
  Country: US (occurrence: US)
  Receive Date: 20230224
  Receipt Date: 20230530
  Transmission Date: 20230722
  Serious: Yes (Hospitalization, Other)
  Sender: FDA-Public Use
  Company Number: US-002147023-NVSC2023US028046

PATIENT
  Age: 0 Year
  Sex: Male
  Weight: 6.7 kg

DRUGS (6)
  1. ZOLGENSMA [Suspect]
     Active Substance: ONASEMNOGENE ABEPARVOVEC-XIOI
     Indication: Spinal muscular atrophy
     Dosage: 19.3 ML, ONCE/SINGLE
     Route: 042
     Dates: start: 20211207, end: 20211207
  2. NUSINERSEN [Concomitant]
     Active Substance: NUSINERSEN
     Indication: Product used for unknown indication
     Dosage: 12 MG
     Route: 065
     Dates: start: 20220503
  3. NUSINERSEN [Concomitant]
     Active Substance: NUSINERSEN
     Dosage: 12 MG
     Route: 065
     Dates: start: 20220517
  4. NUSINERSEN [Concomitant]
     Active Substance: NUSINERSEN
     Dosage: 12 MG
     Route: 065
     Dates: start: 20220531
  5. NUSINERSEN [Concomitant]
     Active Substance: NUSINERSEN
     Dosage: 12 MG
     Route: 065
     Dates: start: 20220712
  6. NUSINERSEN [Concomitant]
     Active Substance: NUSINERSEN
     Dosage: 12 MG
     Route: 065
     Dates: start: 20221108

REACTIONS (15)
  - Acute respiratory failure [Recovered/Resolved]
  - Hypoxia [Recovered/Resolved]
  - Nasopharyngitis [Recovered/Resolved]
  - Fatigue [Recovered/Resolved]
  - Dehydration [Recovered/Resolved]
  - Dyspnoea [Recovered/Resolved]
  - Weight decreased [Recovered/Resolved]
  - Pneumonia bacterial [Recovered/Resolved]
  - Aspiration [Recovered/Resolved]
  - Failure to thrive [Recovered/Resolved]
  - Sepsis [Recovered/Resolved]
  - Bronchiolitis [Recovered/Resolved]
  - Respiratory disorder [Unknown]
  - Rhinorrhoea [Unknown]
  - Cough [Unknown]

NARRATIVE: CASE EVENT DATE: 20220307
